FAERS Safety Report 9680249 (Version 2)
Quarter: 2013Q4

REPORT INFORMATION
  Report Type: Spontaneous
  Country: US (occurrence: US)
  Receive Date: 20131111
  Receipt Date: 20131210
  Transmission Date: 20140711
  Serious: Yes (Hospitalization)
  Sender: FDA-Public Use
  Company Number: US-AMGEN-USASP2013078201

PATIENT
  Age: 51 Year
  Sex: Male
  Weight: 131.5 kg

DRUGS (7)
  1. NPLATE [Suspect]
     Indication: PRODUCT USED FOR UNKNOWN INDICATION
     Route: 065
  2. ZOCOR [Concomitant]
     Route: 065
  3. NOVOLIN NPH [Concomitant]
     Route: 065
  4. ALDACTONE                          /00006201/ [Concomitant]
     Route: 065
  5. GLUCOPHAGE [Concomitant]
     Route: 065
  6. DECADRON                           /00016001/ [Concomitant]
     Route: 048
  7. NEURONTIN [Concomitant]
     Route: 065

REACTIONS (3)
  - Chest pain [Unknown]
  - Dizziness [Unknown]
  - Weight abnormal [Unknown]
